FAERS Safety Report 4457573-2 (Version None)
Quarter: 2004Q3

REPORT INFORMATION
  Report Type: 
  Country: None (occurrence: None)
  Receive Date: 20040922
  Receipt Date: 20040917
  Transmission Date: 20050211
  Serious: Yes (Hospitalization)
  Sender: FDA-Public Use
  Company Number: THQ2004A00554

PATIENT
  Age: 75 Year
  Sex: Male

DRUGS (4)
  1. PROCREN DEPOT INJECTION (LEUPROLIDE ACETATE) [Suspect]
     Indication: PROSTATE CANCER
     Dosage: 11.25 MG (11.25 MG, 1 IN 3 M)
     Route: 058
     Dates: start: 20031008
  2. ATORVASTATIN (ATORVASTATIN) [Concomitant]
  3. GLYBURIDE [Concomitant]
  4. CELEBRA (CELECOXIB) [Concomitant]

REACTIONS (2)
  - NEPHROTIC SYNDROME [None]
  - OEDEMA PERIPHERAL [None]
